FAERS Safety Report 14870919 (Version 2)
Quarter: 2018Q3

REPORT INFORMATION
  Report Type: Spontaneous
  Country: JP (occurrence: JP)
  Receive Date: 20180509
  Receipt Date: 20180725
  Transmission Date: 20181010
  Serious: Yes (Other)
  Sender: FDA-Public Use
  Company Number: JP-SA-2018SA123080

PATIENT
  Age: 80 Year
  Sex: Female

DRUGS (6)
  1. RIFADIN [Suspect]
     Active Substance: RIFAMPIN
     Indication: ATYPICAL MYCOBACTERIAL INFECTION
     Dosage: UNK UNK,UNK
     Route: 065
     Dates: start: 200701, end: 2016
  2. RIFADIN [Suspect]
     Active Substance: RIFAMPIN
     Dosage: UNK UNK,UNK
     Route: 065
     Dates: start: 2016, end: 2016
  3. CLARITHROMYCIN. [Concomitant]
     Active Substance: CLARITHROMYCIN
     Dosage: UNK
     Route: 065
     Dates: start: 200701
  4. LEVOFLOXACIN. [Concomitant]
     Active Substance: LEVOFLOXACIN
  5. CLARITHROMYCIN. [Concomitant]
     Active Substance: CLARITHROMYCIN
     Dosage: UNK
  6. LEVOFLOXACIN. [Suspect]
     Active Substance: LEVOFLOXACIN
     Indication: ATYPICAL MYCOBACTERIAL INFECTION
     Dosage: UNK
     Route: 065
     Dates: start: 200701

REACTIONS (4)
  - Pyrexia [Recovering/Resolving]
  - Systemic lupus erythematosus [Recovering/Resolving]
  - Malaise [Recovering/Resolving]
  - Thrombocytopenia [Recovering/Resolving]
